FAERS Safety Report 6901917-6 (Version None)
Quarter: 2010Q3

REPORT INFORMATION
  Report Type: 
  Country: None (occurrence: None)
  Receive Date: 20100803
  Receipt Date: 20100730
  Transmission Date: 20110219
  Serious: Yes (Death)
  Sender: FDA-Public Use
  Company Number: US-GILEAD-2010-0028485

PATIENT
  Sex: Female
  Weight: 79.45 kg

DRUGS (16)
  1. LETAIRIS [Suspect]
     Route: 048
     Dates: start: 20100316, end: 20100722
  2. PREDNISONE [Concomitant]
  3. MEDROL [Concomitant]
  4. DEXAMETHASONE [Concomitant]
  5. PROVENTIL [Concomitant]
  6. COMBIVENT [Concomitant]
  7. SYMBICORT [Concomitant]
  8. NASONEX [Concomitant]
  9. LORTAB [Concomitant]
  10. PROCHLORPERAZINE [Concomitant]
  11. OMEPRAZOLE [Concomitant]
  12. COLACE [Concomitant]
  13. DIPROSONE [Concomitant]
  14. ZOLOFT [Concomitant]
  15. LEVOTHYROXINE [Concomitant]
  16. FOLIC ACID [Concomitant]

REACTIONS (1)
  - DEATH [None]
